FAERS Safety Report 10926765 (Version 1)
Quarter: 2015Q1

REPORT INFORMATION
  Report Type: Spontaneous
  Country: US (occurrence: None)
  Receive Date: 20150209
  Receipt Date: 20150209
  Transmission Date: 20150721
  Serious: Yes (Other)
  Sender: FDA-Public Use
  Company Number: 2014SCPR008912

PATIENT
  Age: 51 Year
  Sex: Female

DRUGS (1)
  1. BUPROPION HYDROCHLORIDE EXTENDED RELEASE (XL) [Suspect]
     Active Substance: BUPROPION HYDROCHLORIDE
     Indication: DEPRESSION
     Route: 048
     Dates: start: 201401, end: 20140207

REACTIONS (4)
  - Suicidal ideation [None]
  - Alopecia [None]
  - Depression [None]
  - Irritability [None]

NARRATIVE: CASE EVENT DATE: 201401
